FAERS Safety Report 9633570 (Version 1)
Quarter: 2013Q4

REPORT INFORMATION
  Report Type: Spontaneous
  Country: FR (occurrence: None)
  Receive Date: 20131017
  Receipt Date: 20131017
  Transmission Date: 20140711
  Serious: Yes (Hospitalization)
  Sender: FDA-Public Use
  Company Number: NSR_01300_2013

PATIENT
  Age: 22 Year
  Sex: 0

DRUGS (1)
  1. TRAMADOL (TRAMADOL) [Suspect]
     Indication: PRODUCT USED FOR UNKNOWN INDICATION
     Dosage: (NOT THE PRESCRIBED DOSE)?

REACTIONS (4)
  - Overdose [None]
  - Ventricular failure [None]
  - Cardiac arrest [None]
  - Shock [None]
